FAERS Safety Report 5264985-6 (Version None)
Quarter: 2007Q1

REPORT INFORMATION
  Report Type: 
  Country: None (occurrence: None)
  Receive Date: 20070314
  Receipt Date: 20070305
  Transmission Date: 20070707
  Serious: Yes (Hospitalization)
  Sender: FDA-Public Use
  Company Number: FR-ROCHE-485800

PATIENT
  Age: 78 Year
  Sex: Male

DRUGS (18)
  1. RIVOTRIL [Suspect]
     Indication: DRUG USE FOR UNKNOWN INDICATION
     Route: 048
     Dates: start: 20070117, end: 20070122
  2. MORPHINE SUL INJ [Suspect]
     Indication: DRUG USE FOR UNKNOWN INDICATION
     Route: 048
     Dates: start: 20070117, end: 20070123
  3. 1 SUSPECTED DRUG [Suspect]
     Indication: DRUG USE FOR UNKNOWN INDICATION
     Dosage: DRUG NAME GADOBENATE DIMEGLUMINE (MULTIHANCE).
     Route: 042
     Dates: start: 20070122
  4. PAROXETINE HCL [Suspect]
     Indication: DRUG USE FOR UNKNOWN INDICATION
     Route: 048
     Dates: start: 20070118, end: 20070122
  5. XATRAL [Suspect]
     Indication: DRUG USE FOR UNKNOWN INDICATION
     Route: 048
     Dates: start: 20070119, end: 20070124
  6. ATHYMIL [Suspect]
     Indication: DRUG USE FOR UNKNOWN INDICATION
     Route: 048
     Dates: start: 20070119, end: 20070122
  7. INIPOMP [Concomitant]
  8. BUFLOMEDIL [Concomitant]
  9. QUINAPRIL HYDROCHLORIDE AND HYDROCHLOROTHIAZDE [Concomitant]
  10. MONO-TILDIEM [Concomitant]
  11. COAPROVEL [Concomitant]
  12. CRESTOR [Concomitant]
  13. TRAMADOL HCL [Concomitant]
  14. ACETAMINOPHEN AND TRAMADOL HCL [Concomitant]
  15. KETOPROFEN [Concomitant]
  16. MINI-SINTROM [Concomitant]
  17. RILMENIDINE [Concomitant]
  18. PROZAC [Concomitant]

REACTIONS (1)
  - RENAL FAILURE ACUTE [None]
